FAERS Safety Report 15102741 (Version 2)
Quarter: 2018Q3

REPORT INFORMATION
  Report Type: Spontaneous
  Country: US (occurrence: US)
  Receive Date: 20180703
  Receipt Date: 20180917
  Transmission Date: 20181010
  Serious: Yes (Other)
  Sender: FDA-Public Use
  Company Number: US-SA-2018SA164883

PATIENT
  Age: 57 Year
  Sex: Female
  Weight: 65.7 kg

DRUGS (7)
  1. LORAZEPAM. [Concomitant]
     Active Substance: LORAZEPAM
  2. ONDANSETRON [Concomitant]
     Active Substance: ONDANSETRON
  3. TAXOTERE [Suspect]
     Active Substance: DOCETAXEL
     Dosage: 143.2 MG, Q3W
     Route: 042
     Dates: start: 20120627, end: 20120627
  4. CYTOXAN [Concomitant]
     Active Substance: CYCLOPHOSPHAMIDE
  5. LETROZOLE. [Concomitant]
     Active Substance: LETROZOLE
     Dosage: UNK
     Dates: start: 201211
  6. TAXOTERE [Suspect]
     Active Substance: DOCETAXEL
     Indication: BREAST CANCER FEMALE
     Dosage: 143.2 MG
     Route: 042
     Dates: start: 20120417, end: 20120417
  7. NEOSAR [Concomitant]
     Active Substance: CYCLOPHOSPHAMIDE

REACTIONS (2)
  - Alopecia [Recovering/Resolving]
  - Psychological trauma [Unknown]

NARRATIVE: CASE EVENT DATE: 20121227
